FAERS Safety Report 9230575 (Version 1)
Quarter: 2013Q2

REPORT INFORMATION
  Report Type: Spontaneous
  Country: BR (occurrence: None)
  Receive Date: 20130411
  Receipt Date: 20130411
  Transmission Date: 20140414
  Serious: Yes (Hospitalization)
  Sender: FDA-Public Use
  Company Number: 2013-001040

PATIENT
  Sex: Female

DRUGS (1)
  1. ACTONEL [Suspect]
     Route: 048
     Dates: start: 2011

REACTIONS (2)
  - Uterine polyp [None]
  - Gastrointestinal disorder [None]
